FAERS Safety Report 10508621 (Version 1)
Quarter: 2014Q3

REPORT INFORMATION
  Report Type: Spontaneous
  Country: US (occurrence: None)
  Receive Date: 20140915
  Receipt Date: 20140915
  Transmission Date: 20150326
  Serious: Yes (Other)
  Sender: FDA-Public Use
  Company Number: 2014-US-001879

PATIENT
  Age: 52 Year
  Sex: Female

DRUGS (4)
  1. XYREM [Suspect]
     Active Substance: SODIUM OXYBATE
     Route: 048
  2. XYREM [Suspect]
     Active Substance: SODIUM OXYBATE
     Route: 048
     Dates: start: 2014
  3. XYREM [Suspect]
     Active Substance: SODIUM OXYBATE
     Dates: start: 201401
  4. XYREM [Suspect]
     Active Substance: SODIUM OXYBATE
     Indication: NARCOLEPSY
     Dates: start: 201401

REACTIONS (3)
  - Heart rate increased [None]
  - Blood pressure increased [None]
  - Feeling jittery [None]

NARRATIVE: CASE EVENT DATE: 2014
